FAERS Safety Report 14067734 (Version 1)
Quarter: 2017Q4

REPORT INFORMATION
  Report Type: Spontaneous
  Country: US (occurrence: None)
  Receive Date: 20171007
  Receipt Date: 20171007
  Transmission Date: 20180321
  Serious: Yes (Hospitalization)
  Sender: FDA-Public Use
  Company Number: None

PATIENT
  Age: 67 Year
  Sex: Male
  Weight: 57.27 kg

DRUGS (2)
  1. TYLENOL [Concomitant]
     Active Substance: ACETAMINOPHEN
  2. CASODEX [Suspect]
     Active Substance: BICALUTAMIDE
     Dates: end: 20170911

REACTIONS (4)
  - Hepatic failure [None]
  - Liver transplant [None]
  - Haemodialysis [None]
  - Hemiparesis [None]

NARRATIVE: CASE EVENT DATE: 20170929
